FAERS Safety Report 5084898-2 (Version None)
Quarter: 2006Q3

REPORT INFORMATION
  Report Type: 
  Country: None (occurrence: None)
  Receive Date: 20060815
  Receipt Date: 20060731
  Transmission Date: 20061208
  Serious: Yes (Other)
  Sender: FDA-Public Use
  Company Number: 2006AL002078

PATIENT
  Age: 21 Year
  Sex: Female

DRUGS (8)
  1. FLUOXETINE [Suspect]
     Dates: start: 20060419, end: 20060419
  2. DIAZEPAM [Concomitant]
  3. HYDROXYZINE [Concomitant]
  4. CODEINE [Concomitant]
  5. COFFEIN [Concomitant]
  6. ASPIRIN [Concomitant]
  7. IBUPRIFEN [Concomitant]
  8. ALCOHOL [Concomitant]

REACTIONS (4)
  - ABNORMAL BEHAVIOUR [None]
  - DRUG TOXICITY [None]
  - LOSS OF CONSCIOUSNESS [None]
  - VOMITING [None]
